FAERS Safety Report 15839149 (Version 1)
Quarter: 2019Q1

REPORT INFORMATION
  Report Type: Spontaneous
  Country: US (occurrence: US)
  Receive Date: 20190117
  Receipt Date: 20190117
  Transmission Date: 20190417
  Serious: No
  Sender: FDA-Public Use
  Company Number: PHEH2019US001906

PATIENT
  Sex: Male
  Weight: 100.7 kg

DRUGS (1)
  1. VALSARTAN. [Suspect]
     Active Substance: VALSARTAN
     Indication: HYPERTENSION
     Dosage: 160 MG, BID (IN THE MORINING AND IN THE EVENING)
     Route: 048

REACTIONS (1)
  - Drug ineffective [Unknown]
